FAERS Safety Report 5169913-X (Version None)
Quarter: 2006Q4

REPORT INFORMATION
  Report Type: 
  Country: None (occurrence: None)
  Receive Date: 20061212
  Receipt Date: 20061127
  Transmission Date: 20070319
  Serious: Yes (Death)
  Sender: FDA-Public Use
  Company Number: US-ELI_LILLY_AND_COMPANY-US200612001045

PATIENT
  Age: 51 Year
  Sex: Male
  Weight: 64 kg

DRUGS (1)
  1. CYMBALTA [Suspect]
     Dosage: 30 MG, EACH EVENING

REACTIONS (3)
  - ACCIDENTAL DEATH [None]
  - DIABETIC KETOACIDOSIS [None]
  - LOSS OF CONSCIOUSNESS [None]
